FAERS Safety Report 9876565 (Version 2)
Quarter: 2014Q1

REPORT INFORMATION
  Report Type: Other
  Country: US (occurrence: US)
  Receive Date: 20140206
  Receipt Date: 20140206
  Transmission Date: 20141002
  Serious: Yes (Hospitalization, Other)
  Sender: FDA-Public Use
  Company Number: US-ACORDA-ACO_35284_2013

PATIENT
  Age: 66 Year
  Sex: Female

DRUGS (19)
  1. AMPYRA [Suspect]
     Indication: MULTIPLE SCLEROSIS
     Dosage: 10 MG, BID
     Route: 048
     Dates: start: 20130323
  2. OXYBUTYNIN CHLORIDE [Concomitant]
     Indication: PRODUCT USED FOR UNKNOWN INDICATION
     Dosage: 5 MG, TID
     Route: 048
     Dates: start: 20130927
  3. FENOFIBRATE [Concomitant]
     Indication: PRODUCT USED FOR UNKNOWN INDICATION
     Dosage: 160 MG. QD
     Route: 048
     Dates: start: 20130926
  4. BUPROPION HCL [Concomitant]
     Indication: PRODUCT USED FOR UNKNOWN INDICATION
     Dosage: 150 MG, BID
     Route: 048
     Dates: start: 20130910
  5. PILOCARPINE HCL [Concomitant]
     Indication: PRODUCT USED FOR UNKNOWN INDICATION
     Dosage: 5 MG, TID
     Route: 048
     Dates: start: 20130906
  6. FLUTICASONE [Concomitant]
     Indication: PRODUCT USED FOR UNKNOWN INDICATION
     Dosage: 50 ?G, QD, 1 SPRAY EACH NOSTRIL
     Route: 045
     Dates: start: 20130605
  7. FAMOTIDINE [Concomitant]
     Indication: PRODUCT USED FOR UNKNOWN INDICATION
     Dosage: 20 MG, QD WHILE ON STEROIDS
     Route: 048
     Dates: start: 20130409
  8. FLUOCINOLONE ACETONIDE [Concomitant]
     Indication: PRODUCT USED FOR UNKNOWN INDICATION
     Dosage: 0.01%,2 GTT, QD IN BOTH EARS
     Dates: start: 20130205
  9. PROPRANOLOL [Concomitant]
     Indication: PRODUCT USED FOR UNKNOWN INDICATION
     Dosage: 60 MG QD
     Route: 048
     Dates: start: 20121231
  10. CHOLECALCIFEROL [Concomitant]
     Indication: PRODUCT USED FOR UNKNOWN INDICATION
     Dosage: 1000 UNK, 2 CAPSULES QD
     Route: 048
     Dates: start: 20121206
  11. BACLOFEN [Concomitant]
     Indication: PRODUCT USED FOR UNKNOWN INDICATION
     Dosage: 10 MG, QID
     Route: 048
     Dates: start: 20120111
  12. ASPIRIN [Concomitant]
     Indication: PRODUCT USED FOR UNKNOWN INDICATION
     Dosage: 81 MG, QD
     Route: 048
     Dates: start: 20100601
  13. CENTRUM SILVER [Concomitant]
     Indication: PRODUCT USED FOR UNKNOWN INDICATION
     Dosage: 1 DF, QD
     Route: 048
     Dates: start: 20100601
  14. FISH OIL [Concomitant]
     Indication: PRODUCT USED FOR UNKNOWN INDICATION
     Dosage: 1000 MG, BID
     Route: 048
  15. VANCOMYCIN HCL [Concomitant]
     Indication: KLEBSIELLA INFECTION
     Dosage: UNK
     Dates: start: 201307
  16. MAXIPIME [Concomitant]
     Indication: URINARY TRACT INFECTION
     Dosage: UNK
     Dates: start: 201308
  17. CIPRO [Concomitant]
     Indication: URINARY TRACT INFECTION
  18. CORTICOSTEROIDS [Concomitant]
     Indication: MULTIPLE SCLEROSIS
     Dosage: UNK
     Dates: start: 201308
  19. ANTIBIOTIC [Concomitant]
     Indication: PRODUCT USED FOR UNKNOWN INDICATION
     Dosage: UNK

REACTIONS (37)
  - Urinary tract infection [Unknown]
  - Mental status changes [Unknown]
  - Speech disorder [Unknown]
  - Fall [Unknown]
  - Muscular weakness [Unknown]
  - Candida infection [Unknown]
  - Pyrexia [Recovered/Resolved]
  - Toxic encephalopathy [Unknown]
  - Metabolic encephalopathy [Unknown]
  - Antiphospholipid syndrome [Unknown]
  - Klebsiella infection [Unknown]
  - Staphylococcal infection [Unknown]
  - Dysarthria [Unknown]
  - Lethargy [Unknown]
  - Depression [Unknown]
  - Citrobacter infection [Unknown]
  - Systemic inflammatory response syndrome [Unknown]
  - Urinary retention [Unknown]
  - Hallucination [Unknown]
  - Paranoia [Unknown]
  - Peripheral arterial occlusive disease [Unknown]
  - Peripheral arterial occlusive disease [Unknown]
  - Peripheral vascular disorder [Recovered/Resolved]
  - Carotid artery stenosis [Unknown]
  - Venous insufficiency [Unknown]
  - Pyelonephritis [Unknown]
  - Lung infiltration [Unknown]
  - Confusional state [Unknown]
  - Multiple sclerosis relapse [Unknown]
  - Asthenia [Unknown]
  - Limb discomfort [Unknown]
  - Oral pain [None]
  - Rhinitis allergic [Unknown]
  - Hyperlipidaemia [Unknown]
  - Dry mouth [Unknown]
  - Hypertension [Unknown]
  - Drug dose omission [Unknown]
